FAERS Safety Report 22537328 (Version 1)
Quarter: 2023Q2

REPORT INFORMATION
  Report Type: Spontaneous
  Country: US (occurrence: US)
  Receive Date: 20230608
  Receipt Date: 20230608
  Transmission Date: 20230721
  Serious: No
  Sender: FDA-Public Use
  Company Number: US-BRISTOL-MYERS SQUIBB COMPANY-2023-081105

PATIENT
  Age: 64 Year
  Sex: Male
  Weight: 117.93 kg

DRUGS (3)
  1. ELIQUIS [Suspect]
     Active Substance: APIXABAN
     Indication: Cerebrovascular accident prophylaxis
     Route: 048
     Dates: start: 202207
  2. CARDIZEM [Concomitant]
     Active Substance: DILTIAZEM HYDROCHLORIDE
     Indication: Product used for unknown indication
  3. METOPROLOL [Concomitant]
     Active Substance: METOPROLOL
     Indication: Product used for unknown indication

REACTIONS (3)
  - Heart rate increased [Unknown]
  - Weight decreased [Unknown]
  - Heat exhaustion [Unknown]

NARRATIVE: CASE EVENT DATE: 20220901
